FAERS Safety Report 8918838 (Version 1)
Quarter: 2012Q4

REPORT INFORMATION
  Report Type: Spontaneous
  Country: US (occurrence: None)
  Receive Date: 20121115
  Receipt Date: 20121115
  Transmission Date: 20130627
  Serious: Yes (Other)
  Sender: FDA-Public Use
  Company Number: None

PATIENT
  Age: 34 Year
  Sex: Female
  Weight: 71.67 kg

DRUGS (5)
  1. NEXPLANON [Suspect]
     Indication: CONTRACEPTION
     Dates: start: 20121107, end: 20121109
  2. LEVONORGESTREL [Concomitant]
  3. ETHINYL ESTRADIOL [Concomitant]
  4. NEXPLANON [Concomitant]
  5. MULTIVITAMIN [Concomitant]

REACTIONS (11)
  - Implant site erythema [None]
  - Implant site pruritus [None]
  - Oedema peripheral [None]
  - Hypoaesthesia [None]
  - Movement disorder [None]
  - Rash maculo-papular [None]
  - Rash erythematous [None]
  - Dyspnoea [None]
  - Cough [None]
  - Increased upper airway secretion [None]
  - Nasal congestion [None]
